FAERS Safety Report 8840123 (Version 1)
Quarter: 2012Q4

REPORT INFORMATION
  Report Type: 
  Country: US (occurrence: US)
  Receive Date: 20121015
  Receipt Date: 20121015
  Transmission Date: 20130627
  Serious: No
  Sender: FDA-Public Use
  Company Number: US-PFIZER INC-2012255110

PATIENT
  Sex: Male

DRUGS (2)
  1. NEURONTIN [Suspect]
     Dosage: UNK
     Dates: start: 201210
  2. VALIUM [Suspect]
     Indication: DIZZINESS
     Dosage: UNK

REACTIONS (1)
  - Dizziness [Unknown]
